FAERS Safety Report 7054380-1 (Version None)
Quarter: 2010Q4

REPORT INFORMATION
  Report Type: 
  Country: None (occurrence: None)
  Receive Date: 20101015
  Receipt Date: 20101006
  Transmission Date: 20110411
  Serious: Yes (Death, Hospitalization)
  Sender: FDA-Public Use
  Company Number: DSA_44081_2010

PATIENT
  Age: 82 Year
  Sex: Male

DRUGS (4)
  1. DILTIAZEM HYDROCHLORIDE [Suspect]
     Indication: ARRHYTHMIA
     Dosage: (DF ORAL)
     Route: 048
     Dates: start: 20091013, end: 20091020
  2. BISOPROLOL [Concomitant]
  3. LEVOTHYROXINE SODIUM [Concomitant]
  4. FLUINDIONE [Concomitant]

REACTIONS (4)
  - ACUTE GENERALISED EXANTHEMATOUS PUSTULOSIS [None]
  - CONTRAINDICATION TO MEDICAL TREATMENT [None]
  - HAEMODYNAMIC INSTABILITY [None]
  - LEFT VENTRICULAR FAILURE [None]
